FAERS Safety Report 23438667 (Version 1)
Quarter: 2024Q1

REPORT INFORMATION
  Report Type: Spontaneous
  Country: US (occurrence: None)
  Receive Date: 20240124
  Receipt Date: 20240124
  Transmission Date: 20240410
  Serious: Yes (Disabling)
  Sender: FDA-Public Use
  Company Number: None

PATIENT
  Age: 63 Year
  Sex: Female
  Weight: 67.5 kg

DRUGS (7)
  1. FLUCONAZOLE [Suspect]
     Active Substance: FLUCONAZOLE
     Indication: Fungal infection
     Dosage: 1 TABLET DAILY ORAL
     Route: 048
     Dates: start: 20240115, end: 20240121
  2. SYNTHROID [Concomitant]
  3. CYTOMEL [Concomitant]
     Active Substance: LIOTHYRONINE SODIUM
  4. DEVICE [Concomitant]
     Active Substance: DEVICE
  5. VITAMINS [Concomitant]
     Active Substance: VITAMINS
  6. FISH OIL [Concomitant]
     Active Substance: FISH OIL
  7. FLONASE [Concomitant]
     Active Substance: FLUTICASONE PROPIONATE

REACTIONS (6)
  - Back pain [None]
  - Muscle spasms [None]
  - Dysstasia [None]
  - Dyspnoea [None]
  - Fungal infection [None]
  - Condition aggravated [None]

NARRATIVE: CASE EVENT DATE: 20240122
